FAERS Safety Report 24051953 (Version 1)
Quarter: 2024Q3

REPORT INFORMATION
  Report Type: Spontaneous
  Country: JP (occurrence: JP)
  Receive Date: 20240704
  Receipt Date: 20240704
  Transmission Date: 20241017
  Serious: Yes (Other)
  Sender: TAKEDA
  Company Number: JP-OTSUKA-2024_018236

PATIENT
  Age: 56 Year
  Sex: Female

DRUGS (8)
  1. ICLUSIG [Suspect]
     Active Substance: PONATINIB\PONATINIB HYDROCHLORIDE
     Indication: Philadelphia positive acute lymphocytic leukaemia
     Dosage: 45 MILLIGRAM
     Route: 065
  2. ICLUSIG [Suspect]
     Active Substance: PONATINIB\PONATINIB HYDROCHLORIDE
     Dosage: UNK
     Route: 065
  3. METHOTREXATE [Concomitant]
     Active Substance: METHOTREXATE
     Indication: Philadelphia positive acute lymphocytic leukaemia
     Dosage: UNK
     Route: 065
  4. ROMIDEPSIN [Concomitant]
     Active Substance: ROMIDEPSIN
     Indication: Philadelphia positive acute lymphocytic leukaemia
     Dosage: UNK
     Route: 065
  5. FLUDARA [Concomitant]
     Active Substance: FLUDARABINE PHOSPHATE
     Indication: Stem cell transplant
     Dosage: UNK
     Route: 065
  6. FLUDARA [Concomitant]
     Active Substance: FLUDARABINE PHOSPHATE
     Indication: Premedication
  7. MELPHALAN [Concomitant]
     Active Substance: MELPHALAN
     Indication: Stem cell transplant
     Dosage: UNK
     Route: 065
  8. MELPHALAN [Concomitant]
     Active Substance: MELPHALAN
     Indication: Premedication

REACTIONS (2)
  - Cerebral microhaemorrhage [Unknown]
  - Gastric pneumatosis [Unknown]
